FAERS Safety Report 11886623 (Version 3)
Quarter: 2016Q1

REPORT INFORMATION
  Report Type: Spontaneous
  Country: US (occurrence: US)
  Receive Date: 20160104
  Receipt Date: 20160108
  Transmission Date: 20160526
  Serious: Yes (Other)
  Sender: FDA-Public Use
  Company Number: US-NAPPMUNDI-USA-2015-0128150

PATIENT
  Sex: Female

DRUGS (1)
  1. SENOKOT [Suspect]
     Active Substance: SENNOSIDES
     Indication: CONSTIPATION
     Dosage: UNK UNK, PRN
     Route: 048

REACTIONS (20)
  - Hepatitis C [Unknown]
  - Constipation [Unknown]
  - Diarrhoea [Unknown]
  - Vaginal cyst [Unknown]
  - Cholelithiasis [Unknown]
  - Surgery [Unknown]
  - Colitis [Unknown]
  - Anaemia [Unknown]
  - Glucose-6-phosphate dehydrogenase deficiency [Unknown]
  - Maternal exposure timing unspecified [Recovered/Resolved]
  - Benign vaginal neoplasm [Unknown]
  - Gastric disorder [Unknown]
  - Drug hypersensitivity [Unknown]
  - Caesarean section [Unknown]
  - Gallbladder operation [Unknown]
  - Abdominal adhesions [Unknown]
  - Diabetes mellitus [Unknown]
  - Intestinal obstruction [Unknown]
  - Anaphylactoid shock [Unknown]
  - Irritable bowel syndrome [Unknown]
